FAERS Safety Report 4718635-5 (Version None)
Quarter: 2005Q3

REPORT INFORMATION
  Report Type: 
  Country: None (occurrence: None)
  Receive Date: 20050720
  Receipt Date: 20050713
  Transmission Date: 20060218
  Serious: Yes (Death)
  Sender: FDA-Public Use
  Company Number: JP-GLAXOSMITHKLINE-B0387787A

PATIENT
  Age: 87 Year
  Sex: Female

DRUGS (9)
  1. PAXIL [Suspect]
     Indication: PANIC DISORDER
     Route: 048
     Dates: start: 20050420, end: 20050701
  2. ASPIRIN [Concomitant]
     Route: 048
  3. MAGNESIUM OXIDE [Concomitant]
     Route: 048
  4. MINITRO [Concomitant]
     Route: 048
  5. DIART [Concomitant]
     Route: 048
  6. RENIVACE [Concomitant]
     Route: 048
  7. ALDACTONE [Concomitant]
     Route: 048
  8. SOLANAX [Concomitant]
     Route: 048
  9. NAUZELIN [Concomitant]
     Route: 065

REACTIONS (2)
  - CARDIAC FAILURE CHRONIC [None]
  - INAPPROPRIATE ANTIDIURETIC HORMONE SECRETION [None]
